FAERS Safety Report 6944945-7 (Version None)
Quarter: 2010Q3

REPORT INFORMATION
  Report Type: 
  Country: None (occurrence: None)
  Receive Date: 20100827
  Receipt Date: 20100816
  Transmission Date: 20110219
  Serious: Yes (Other)
  Sender: FDA-Public Use
  Company Number: US-MYLANLABS-2010S1015120

PATIENT
  Age: 50 Year
  Sex: Female

DRUGS (5)
  1. EMSAM [Suspect]
     Indication: DEPRESSION
     Route: 062
     Dates: start: 20100701
  2. LUNESTA [Concomitant]
  3. LORAZEPAM [Concomitant]
  4. IMODIUM [Concomitant]
  5. METAMUCIL-2 [Concomitant]

REACTIONS (12)
  - ABNORMAL LOSS OF WEIGHT [None]
  - ANXIETY [None]
  - CHILLS [None]
  - DECREASED APPETITE [None]
  - HAEMATOCHEZIA [None]
  - HYPOAESTHESIA [None]
  - MUSCULOSKELETAL STIFFNESS [None]
  - NERVOUSNESS [None]
  - RECTAL HAEMORRHAGE [None]
  - RESTLESSNESS [None]
  - SLEEP DISORDER [None]
  - TARDIVE DYSKINESIA [None]
